FAERS Safety Report 7096896-8 (Version None)
Quarter: 2010Q4

REPORT INFORMATION
  Report Type: 
  Country: None (occurrence: None)
  Receive Date: 20101111
  Receipt Date: 20100218
  Transmission Date: 20110411
  Serious: No
  Sender: FDA-Public Use
  Company Number: US-KINGPHARMUSA00001-K201000196

PATIENT
  Age: 70 Year
  Sex: Female
  Weight: 81.633 kg

DRUGS (2)
  1. FLECTOR [Suspect]
     Indication: PAIN IN EXTREMITY
     Dosage: 1 PATCH, SINGLE
     Route: 061
     Dates: start: 20100101, end: 20100101
  2. FLECTOR [Suspect]

REACTIONS (1)
  - APPLICATION SITE RASH [None]
